FAERS Safety Report 6776215-4 (Version None)
Quarter: 2010Q2

REPORT INFORMATION
  Report Type: 
  Country: None (occurrence: None)
  Receive Date: 20100617
  Receipt Date: 20100609
  Transmission Date: 20101027
  Serious: Yes (Hospitalization)
  Sender: FDA-Public Use
  Company Number: US-AMGEN-QUU413586

PATIENT
  Sex: Female
  Weight: 97.2 kg

DRUGS (8)
  1. ENBREL [Suspect]
     Indication: RHEUMATOID ARTHRITIS
     Route: 058
     Dates: start: 20061227, end: 20090621
  2. NORTRIPTYLINE HCL [Concomitant]
     Route: 048
     Dates: start: 20090401, end: 20090624
  3. MIDRIN [Concomitant]
     Route: 048
     Dates: start: 20090101, end: 20090624
  4. PRENATAL VITAMINS [Concomitant]
     Route: 048
     Dates: start: 20090624
  5. TYLENOL [Concomitant]
     Route: 048
  6. FIORICET [Concomitant]
  7. PROMETRIUM [Concomitant]
     Dates: end: 20090813
  8. TAMIFLU [Concomitant]
     Dates: start: 20091002, end: 20091009

REACTIONS (3)
  - GESTATIONAL DIABETES [None]
  - PREMATURE LABOUR [None]
  - RHEUMATOID ARTHRITIS [None]
